FAERS Safety Report 5327489-8 (Version None)
Quarter: 2007Q2

REPORT INFORMATION
  Report Type: 
  Country: None (occurrence: None)
  Receive Date: 20070517
  Receipt Date: 20070221
  Transmission Date: 20071010
  Serious: Yes (Hospitalization)
  Sender: FDA-Public Use
  Company Number: US-JNJFOC-20070104341

PATIENT
  Age: 22 Year
  Sex: Female

DRUGS (4)
  1. TRAMADOL HCL [Suspect]
     Indication: INTENTIONAL DRUG MISUSE
     Route: 048
  2. MELOXICAM [Suspect]
     Indication: INTENTIONAL DRUG MISUSE
     Route: 048
  3. ACETAMINOPHEN W/ CODEINE [Suspect]
     Indication: INTENTIONAL DRUG MISUSE
     Route: 048
  4. MODAFINIL [Suspect]
     Indication: INTENTIONAL DRUG MISUSE
     Route: 048

REACTIONS (5)
  - CONVULSION [None]
  - INTENTIONAL DRUG MISUSE [None]
  - MENTAL STATUS CHANGES [None]
  - MULTIPLE DRUG OVERDOSE [None]
  - SEDATION [None]
